FAERS Safety Report 7617459-9 (Version None)
Quarter: 2011Q3

REPORT INFORMATION
  Report Type: 
  Country: None (occurrence: None)
  Receive Date: 20110718
  Receipt Date: 20110712
  Transmission Date: 20111222
  Serious: Yes (Other)
  Sender: FDA-Public Use
  Company Number: US-PFIZER INC-2011157652

PATIENT
  Age: 59 Year
  Sex: Female
  Weight: 63.039 kg

DRUGS (3)
  1. PREMARIN [Suspect]
     Indication: HOT FLUSH
     Dosage: UNK, DAILY
     Route: 048
  2. LEVOTHYROXINE [Concomitant]
     Dosage: 100 UG, DAILY
  3. VALSARTAN [Concomitant]
     Indication: HYPERTENSION
     Dosage: 80 MG, UNK

REACTIONS (2)
  - HOT FLUSH [None]
  - BREAST CANCER FEMALE [None]
